FAERS Safety Report 9640294 (Version 1)
Quarter: 2013Q4

REPORT INFORMATION
  Report Type: Spontaneous
  Country: GB (occurrence: GB)
  Receive Date: 20131023
  Receipt Date: 20131023
  Transmission Date: 20140711
  Serious: Yes (Hospitalization)
  Sender: FDA-Public Use
  Company Number: GB-EISAI INC-E2007-01368-SPO-GB

PATIENT
  Age: 32 Year
  Sex: Female

DRUGS (11)
  1. FYCOMPA (PERAMPANEL) [Suspect]
     Indication: EPILEPSY
     Dosage: UNKNOWN
     Route: 048
  2. FYCOMPA (PERAMPANEL) [Suspect]
     Route: 048
  3. FYCOMPA (PERAMPANEL) [Suspect]
     Dosage: DOSE REDUCED (UNKNOWN)
     Route: 048
  4. ALFACALCIDOL [Concomitant]
  5. DIAZEPAM [Concomitant]
  6. FOLIC ACID [Concomitant]
  7. LEVOTHYROXINE [Concomitant]
  8. PARACETAMOL [Concomitant]
  9. SODIUM VALPROATE [Concomitant]
  10. TRIMETHOPRIM [Concomitant]
  11. ZONISAMIDE [Concomitant]

REACTIONS (1)
  - Psychotic disorder [Recovering/Resolving]
